FAERS Safety Report 25326330 (Version 1)
Quarter: 2025Q2

REPORT INFORMATION
  Report Type: Spontaneous
  Country: HR (occurrence: HR)
  Receive Date: 20250516
  Receipt Date: 20250516
  Transmission Date: 20250716
  Serious: Yes (Hospitalization, Other)
  Sender: REGENERON
  Company Number: HR-REGENERON PHARMACEUTICALS, INC.-2025-079920

PATIENT
  Age: 60 Year
  Sex: Female

DRUGS (1)
  1. LIBTAYO [Suspect]
     Active Substance: CEMIPLIMAB-RWLC
     Indication: Non-small cell lung cancer
     Dosage: 350 MG, Q3W

REACTIONS (3)
  - Respiratory failure [Unknown]
  - Pneumonitis [Unknown]
  - Therapy partial responder [Unknown]
